FAERS Safety Report 19652019 (Version 2)
Quarter: 2021Q3

REPORT INFORMATION
  Report Type: Spontaneous
  Country: US (occurrence: US)
  Receive Date: 20210803
  Receipt Date: 20210902
  Transmission Date: 20211014
  Serious: Yes (Hospitalization)
  Sender: FDA-Public Use
  Company Number: US-GW PHARMA-202107USGW03725

PATIENT

DRUGS (1)
  1. EPIDIOLEX [Suspect]
     Active Substance: CANNABIDIOL
     Indication: LENNOX-GASTAUT SYNDROME
     Dosage: 400 MILLIGRAM
     Dates: start: 20200114

REACTIONS (2)
  - Gastrointestinal haemorrhage [Recovered/Resolved]
  - Oesophagitis [Unknown]

NARRATIVE: CASE EVENT DATE: 20210724
